FAERS Safety Report 24192028 (Version 1)
Quarter: 2024Q3

REPORT INFORMATION
  Report Type: Spontaneous
  Country: CN (occurrence: CN)
  Receive Date: 20240809
  Receipt Date: 20240809
  Transmission Date: 20241017
  Serious: Yes (Hospitalization)
  Sender: NOVO NORDISK
  Company Number: None

PATIENT
  Age: 53 Year
  Sex: Female
  Weight: 62 kg

DRUGS (1)
  1. INSULIN ASPART [Suspect]
     Active Substance: INSULIN ASPART
     Indication: Diabetes mellitus
     Dosage: 32 U (18 U BEFORE BREAKFAST, 14 U 5 MINUTES BEFORE DINNER; BID
     Route: 058
     Dates: start: 20240717

REACTIONS (5)
  - Dizziness [Not Recovered/Not Resolved]
  - Glare [Unknown]
  - Muscle tightness [Unknown]
  - Neck pain [Unknown]
  - Tenderness [Unknown]

NARRATIVE: CASE EVENT DATE: 20240717
